FAERS Safety Report 10730516 (Version 2)
Quarter: 2015Q1

REPORT INFORMATION
  Report Type: Spontaneous
  Country: US (occurrence: US)
  Receive Date: 20150122
  Receipt Date: 20150302
  Transmission Date: 20150721
  Serious: Yes (Other)
  Sender: FDA-Public Use
  Company Number: US-BAYER-2015-004501

PATIENT
  Age: 75 Year
  Sex: Female

DRUGS (2)
  1. EOVIST [Suspect]
     Active Substance: GADOXETATE DISODIUM
     Indication: NUCLEAR MAGNETIC RESONANCE IMAGING LIVER
     Dosage: 18 ML, UNK
     Route: 042
     Dates: start: 20150106
  2. EOVIST [Suspect]
     Active Substance: GADOXETATE DISODIUM
     Indication: HEPATIC LESION

REACTIONS (1)
  - Respiration abnormal [None]

NARRATIVE: CASE EVENT DATE: 20150106
